FAERS Safety Report 24279441 (Version 1)
Quarter: 2024Q3

REPORT INFORMATION
  Report Type: Spontaneous
  Country: HU (occurrence: None)
  Receive Date: 20240903
  Receipt Date: 20240903
  Transmission Date: 20241017
  Serious: Yes (Other)
  Sender: UNICHEM
  Company Number: HU-Unichem Pharmaceuticals (USA) Inc-UCM202408-001080

PATIENT
  Age: 17 Year

DRUGS (1)
  1. LAMOTRIGINE [Suspect]
     Active Substance: LAMOTRIGINE
     Indication: Product used for unknown indication
     Dosage: UNKNOWN

REACTIONS (7)
  - Hypothermia [Recovered/Resolved]
  - Acute respiratory distress syndrome [Recovered/Resolved]
  - Sepsis [Recovered/Resolved]
  - Renal tubular necrosis [Recovered/Resolved]
  - Toxic epidermal necrolysis [None]
  - Electrolyte imbalance [Recovered/Resolved]
  - Anaemia [Recovered/Resolved]
